FAERS Safety Report 8408564-8 (Version None)
Quarter: 2012Q2

REPORT INFORMATION
  Report Type: 
  Country: None (occurrence: None)
  Receive Date: 20120604
  Receipt Date: 20120530
  Transmission Date: 20120825
  Serious: No
  Sender: FDA-Public Use
  Company Number: US-BAYER-2012-055060

PATIENT
  Sex: Female

DRUGS (2)
  1. TRAMADOL HCL [Suspect]
  2. ALEVE (CAPLET) [Suspect]
     Dosage: UNK
     Route: 048

REACTIONS (1)
  - ABDOMINAL PAIN UPPER [None]
